FAERS Safety Report 10215802 (Version 1)
Quarter: 2014Q2

REPORT INFORMATION
  Report Type: Spontaneous
  Country: DK (occurrence: None)
  Receive Date: 20140602
  Receipt Date: 20140602
  Transmission Date: 20141212
  Serious: Yes (Disabling, Other)
  Sender: FDA-Public Use
  Company Number: DK-20140005

PATIENT
  Age: 49 Year
  Sex: Female

DRUGS (2)
  1. PARAMAGNETIC CONTRAST MEDIA(GADOLINIUM) [Suspect]
     Indication: SCAN WITH CONTRAST
     Dosage: UNK (1 IN 1 D)
     Dates: start: 20041122, end: 20041122
  2. PARAMAGNETIC CONTRAST MEDIA(GADOLINIUM) [Suspect]
     Indication: SCAN WITH CONTRAST
     Dosage: UNK (1 IN 1 D)
     Dates: start: 20041122, end: 20041122

REACTIONS (21)
  - Nephrogenic systemic fibrosis [None]
  - Mastication disorder [None]
  - Muscle spasms [None]
  - Onychomycosis [None]
  - Appetite disorder [None]
  - Arthralgia [None]
  - Dry skin [None]
  - Myalgia [None]
  - Muscular weakness [None]
  - Skin hypertrophy [None]
  - Pain in extremity [None]
  - Dysphagia [None]
  - Gastritis [None]
  - Skin exfoliation [None]
  - Contrast media reaction [None]
  - Discomfort [None]
  - Feeding disorder [None]
  - Muscle fatigue [None]
  - Appetite disorder [None]
  - Skin hypertrophy [None]
  - Pain in extremity [None]
